FAERS Safety Report 7402822-1 (Version None)
Quarter: 2011Q1

REPORT INFORMATION
  Report Type: 
  Country: None (occurrence: None)
  Receive Date: 20110329
  Receipt Date: 20110314
  Transmission Date: 20110831
  Serious: Yes (Hospitalization, Other)
  Sender: FDA-Public Use
  Company Number: JPI-P-011884

PATIENT
  Age: 39 Year
  Sex: Female
  Weight: 107.9561 kg

DRUGS (26)
  1. XYREM [Suspect]
     Indication: CATAPLEXY
     Dosage: 4.5 GM (2.25 GM, 2 IN 1 D), ORAL; 5 GM (2.5 GM, 2 IN 1 D), ORAL; 9 GM (4.5 GM, 2 IN 1 D), ORAL
     Route: 048
     Dates: start: 20071001, end: 20080101
  2. XYREM [Suspect]
     Indication: CATAPLEXY
     Dosage: 4.5 GM (2.25 GM, 2 IN 1 D), ORAL; 5 GM (2.5 GM, 2 IN 1 D), ORAL; 9 GM (4.5 GM, 2 IN 1 D), ORAL
     Route: 048
     Dates: start: 20070901, end: 20071001
  3. XYREM [Suspect]
     Indication: CATAPLEXY
     Dosage: 4.5 GM (2.25 GM, 2 IN 1 D), ORAL; 5 GM (2.5 GM, 2 IN 1 D), ORAL; 9 GM (4.5 GM, 2 IN 1 D), ORAL
     Route: 048
     Dates: start: 20080101, end: 20090201
  4. XYREM [Suspect]
     Indication: CATAPLEXY
     Dosage: 4.5 GM (2.25 GM, 2 IN 1 D), ORAL; 5 GM (2.5 GM, 2 IN 1 D), ORAL; 9 GM (4.5 GM, 2 IN 1 D), ORAL
     Route: 048
     Dates: start: 20090101
  5. XYREM [Suspect]
     Indication: CATAPLEXY
     Dosage: 4.5 GM (2.25 GM, 2 IN 1 D), ORAL; 5 GM (2.5 GM, 2 IN 1 D), ORAL; 9 GM (4.5 GM, 2 IN 1 D), ORAL
     Route: 048
     Dates: start: 20090201, end: 20090101
  6. XYREM [Suspect]
     Indication: CATAPLEXY
     Dosage: 4.5 GM (2.25 GM, 2 IN 1 D), ORAL; 5 GM (2.5 GM, 2 IN 1 D), ORAL; 9 GM (4.5 GM, 2 IN 1 D), ORAL
     Route: 048
     Dates: start: 20060101
  7. XYREM [Suspect]
     Indication: CATAPLEXY
     Dosage: 4.5 GM (2.25 GM, 2 IN 1 D), ORAL; 5 GM (2.5 GM, 2 IN 1 D), ORAL; 9 GM (4.5 GM, 2 IN 1 D), ORAL
     Route: 048
     Dates: start: 20080101, end: 20080101
  8. VITAMIN D [Concomitant]
  9. CETIRIZINE HCL [Concomitant]
  10. LIDOCAINE [Concomitant]
  11. MOMETASONE FUROATE [Concomitant]
  12. SIMVASTATIN [Concomitant]
  13. MONTELUKAST SODIUM [Concomitant]
  14. ONDANSETRON [Concomitant]
  15. DEXTROAMPHETAMIN CR [Concomitant]
  16. BUSPIRONE HCL [Concomitant]
  17. LORAZEPAM [Concomitant]
  18. VOLTAREN [Concomitant]
  19. PIMECROLIMUS [Concomitant]
  20. TIZANIDINE [Concomitant]
  21. DIHYDROERGOTAMINE [Concomitant]
  22. BENZTROPINE MESYLATE [Concomitant]
  23. KETOCONAZOLE [Concomitant]
  24. CLONAZEPAM [Concomitant]
  25. FENTANYL [Concomitant]
  26. ALBUTEROL [Concomitant]

REACTIONS (30)
  - ARTHRALGIA [None]
  - POLYCYSTIC OVARIES [None]
  - PSORIATIC ARTHROPATHY [None]
  - MUSCLE TWITCHING [None]
  - SYSTEMIC LUPUS ERYTHEMATOSUS [None]
  - GLOMERULAR FILTRATION RATE DECREASED [None]
  - HOT FLUSH [None]
  - POOR QUALITY SLEEP [None]
  - INITIAL INSOMNIA [None]
  - NAUSEA [None]
  - POST-TRAUMATIC STRESS DISORDER [None]
  - PAIN [None]
  - DISSOCIATIVE IDENTITY DISORDER [None]
  - RHEUMATOID ARTHRITIS [None]
  - AUTONOMIC NERVOUS SYSTEM IMBALANCE [None]
  - HYPERHIDROSIS [None]
  - ARTHROPATHY [None]
  - MIGRAINE [None]
  - SINUS TACHYCARDIA [None]
  - LABILE BLOOD PRESSURE [None]
  - HYPOKALAEMIA [None]
  - MIDDLE INSOMNIA [None]
  - CONDITION AGGRAVATED [None]
  - WEIGHT INCREASED [None]
  - SLEEP APNOEA SYNDROME [None]
  - CHEST PAIN [None]
  - PAIN IN JAW [None]
  - INSOMNIA [None]
  - NIGHT SWEATS [None]
  - VITAMIN D DEFICIENCY [None]
